FAERS Safety Report 21326773 (Version 1)
Quarter: 2022Q3

REPORT INFORMATION
  Report Type: Spontaneous
  Country: GB (occurrence: GB)
  Receive Date: 20220913
  Receipt Date: 20220913
  Transmission Date: 20221027
  Serious: Yes (Other)
  Sender: FDA-Public Use
  Company Number: None

PATIENT
  Sex: Male

DRUGS (12)
  1. GABAPENTIN [Suspect]
     Active Substance: GABAPENTIN
     Dosage: 4 - 3 TIMES A DAY = 3,600MG, OVER 10 YEARS.
  2. TRAMADOL [Suspect]
     Active Substance: TRAMADOL
     Dosage: 1 - 4 TIMES A DAY = 200MG, OVER 10 YEARS.
  3. ATORVASTATIN [Suspect]
     Active Substance: ATORVASTATIN
     Dosage: 1 A DAY OVER 10 YEARS.
  4. LISINOPRIL [Suspect]
     Active Substance: LISINOPRIL
     Dosage: 1 A DAY OVER 10 YEARS
  5. CLONAZEPAM [Suspect]
     Active Substance: CLONAZEPAM
     Dosage: 1 - 4 TIMES A DAY, OVER 10 YEARS.
  6. BACLOFEN [Suspect]
     Active Substance: BACLOFEN
     Dosage: 1 - 4 TIMES A DAY = 40MG, OVER 10 YEARS.
  7. ISOSORBIDE MONONITRATE [Suspect]
     Active Substance: ISOSORBIDE MONONITRATE
     Dosage: 80 MG, OVER 10 YEARS.
  8. SERTRALINE [Suspect]
     Active Substance: SERTRALINE HYDROCHLORIDE
     Dosage: 200MG, OVER 10 YEARS.
  9. ASPIRIN [Suspect]
     Active Substance: ASPIRIN
     Dosage: 1 A DAY OVER 10 YEARS. TOTAL PER DAY 4,625 MG A DAY/10 YEAR.
  10. ATENOLOL [Suspect]
     Active Substance: ATENOLOL
     Dosage: 1 A DAY OVER 10 YEARS.
  11. AMLODIPINE [Suspect]
     Active Substance: AMLODIPINE BESYLATE
     Dosage: 1 A DAY OVER 10 YEARS.
  12. ALLOPURINOL [Suspect]
     Active Substance: ALLOPURINOL
     Dosage: 1 A DAY OVER 10 YEARS.

REACTIONS (3)
  - Confusion postoperative [Unknown]
  - Agitation postoperative [Unknown]
  - Drug interaction [Unknown]
